FAERS Safety Report 21649749 (Version 3)
Quarter: 2022Q4

REPORT INFORMATION
  Report Type: Spontaneous
  Country: FR (occurrence: None)
  Receive Date: 20221128
  Receipt Date: 20221219
  Transmission Date: 20230113
  Serious: Yes (Hospitalization)
  Sender: FDA-Public Use
  Company Number: FR-ORGANON-O2206FRA001863

PATIENT
  Age: 67 Year
  Sex: Male

DRUGS (19)
  1. STALEVO [Suspect]
     Active Substance: CARBIDOPA\ENTACAPONE\LEVODOPA
     Indication: Parkinson^s disease
     Route: 065
     Dates: start: 202205, end: 2022
  2. CARBIDOPA\LEVODOPA [Suspect]
     Active Substance: CARBIDOPA\LEVODOPA
     Indication: Parkinson^s disease
     Dosage: 1/2 TABLET  AT 8.00 PM (ALSO REPORTED AS IN THE MORNING)
     Route: 065
     Dates: start: 2020
  3. CARBIDOPA\LEVODOPA [Suspect]
     Active Substance: CARBIDOPA\LEVODOPA
     Dosage: 1 TABLET 200/50 AT 11PM
     Route: 065
     Dates: start: 2020
  4. SINEMET [Suspect]
     Active Substance: CARBIDOPA\LEVODOPA
     Indication: Parkinson^s disease
     Dosage: 1/2 TABLET AT 8.00 PM  (ALSO REPORTED AS ^IN THE MORNING^)
     Route: 065
  5. SINEMET [Suspect]
     Active Substance: CARBIDOPA\LEVODOPA
     Indication: Tremor
     Dosage: 100/10 2 TABLETS AT 2PM
     Route: 065
     Dates: start: 2020
  6. SINEMET [Suspect]
     Active Substance: CARBIDOPA\LEVODOPA
     Indication: Pain
     Dosage: 100/10 2 TABLETS AT 5PM
     Route: 065
     Dates: start: 2020
  7. SINEMET [Suspect]
     Active Substance: CARBIDOPA\LEVODOPA
     Dosage: 100/10 2 TABLETS AT 8 PM
     Route: 065
     Dates: start: 2020
  8. SINEMET [Suspect]
     Active Substance: CARBIDOPA\LEVODOPA
     Route: 065
     Dates: start: 2020
  9. SINEMET [Suspect]
     Active Substance: CARBIDOPA\LEVODOPA
     Dosage: (HALF TABLET, TO INCREASE WITHOUT FURTHER INFORMATION)
     Route: 065
     Dates: start: 20220603, end: 20220902
  10. SINEMET [Suspect]
     Active Substance: CARBIDOPA\LEVODOPA
     Dosage: 3 TABLETS OF 50 MG A DAY
     Route: 065
     Dates: start: 2013
  11. SINEMET [Suspect]
     Active Substance: CARBIDOPA\LEVODOPA
     Dosage: INCREASED DOSE
     Route: 065
     Dates: start: 2020
  12. SINEMET [Suspect]
     Active Substance: CARBIDOPA\LEVODOPA
     Dosage: 250 MG/25 MG, AT 11 AM
     Route: 065
     Dates: start: 2013
  13. SINEMET [Suspect]
     Active Substance: CARBIDOPA\LEVODOPA
     Dosage: 250 MG/25 MG, AT 8.00 PM (ALSO REPORTED AS ^IN THE MORNING^)
     Route: 065
     Dates: start: 2020
  14. SINEMET [Suspect]
     Active Substance: CARBIDOPA\LEVODOPA
     Dosage: AT 8.00 AM
     Route: 065
     Dates: start: 2020
  15. SINEMET [Suspect]
     Active Substance: CARBIDOPA\LEVODOPA
     Dosage: INCREASED DOSE
     Route: 065
  16. AZILECT [Concomitant]
     Active Substance: RASAGILINE MESYLATE
     Route: 065
     Dates: start: 2013
  17. HYDROCHLOROTHIAZIDE\RAMIPRIL [Concomitant]
     Active Substance: HYDROCHLOROTHIAZIDE\RAMIPRIL
     Indication: Blood pressure abnormal
     Route: 065
  18. RAMIPRIL [Concomitant]
     Active Substance: RAMIPRIL
     Indication: Blood pressure abnormal
     Route: 065
  19. LERCANIDIPINE [Concomitant]
     Active Substance: LERCANIDIPINE
     Indication: Blood pressure abnormal
     Route: 065

REACTIONS (3)
  - Dyspnoea [Recovered/Resolved]
  - Grimacing [Not Recovered/Not Resolved]
  - Dyskinesia [Not Recovered/Not Resolved]
